FAERS Safety Report 12720213 (Version 16)
Quarter: 2018Q2

REPORT INFORMATION
  Report Type: Spontaneous
  Country: US (occurrence: US)
  Receive Date: 20160907
  Receipt Date: 20180423
  Transmission Date: 20180711
  Serious: Yes (Hospitalization, Other)
  Sender: FDA-Public Use
  Company Number: US-PFIZER INC-2016421164

PATIENT
  Age: 65 Year
  Sex: Female

DRUGS (2)
  1. XELJANZ [Suspect]
     Active Substance: TOFACITINIB CITRATE
     Indication: ARTHRITIS
     Dosage: 5 MG, UNK
  2. XELJANZ [Suspect]
     Active Substance: TOFACITINIB CITRATE
     Indication: RHEUMATOID ARTHRITIS
     Dosage: 5 MG, 2X/DAY
     Dates: start: 20170531

REACTIONS (19)
  - Cryptococcosis [Recovered/Resolved]
  - Condition aggravated [Not Recovered/Not Resolved]
  - Drug ineffective [Unknown]
  - Musculoskeletal disorder [Recovered/Resolved]
  - Fatigue [Recovered/Resolved]
  - Staphylococcal infection [Unknown]
  - Arthritis [Not Recovered/Not Resolved]
  - Pain in extremity [Unknown]
  - Dyskinesia [Recovered/Resolved]
  - Rhinitis [Unknown]
  - Blood albumin abnormal [Unknown]
  - Vein disorder [Unknown]
  - Feeling abnormal [Recovered/Resolved]
  - Movement disorder [Unknown]
  - Malaise [Recovered/Resolved]
  - Fluid retention [Unknown]
  - Somnolence [Recovered/Resolved]
  - Pain [Unknown]
  - Hand deformity [Not Recovered/Not Resolved]

NARRATIVE: CASE EVENT DATE: 2014
